FAERS Safety Report 6814897-9 (Version None)
Quarter: 2010Q3

REPORT INFORMATION
  Report Type: 
  Country: None (occurrence: None)
  Receive Date: 20100702
  Receipt Date: 20100625
  Transmission Date: 20110219
  Serious: Yes (Hospitalization)
  Sender: FDA-Public Use
  Company Number: US-ROCHE-708610

PATIENT
  Sex: Female

DRUGS (1)
  1. AVASTIN [Suspect]
     Dosage: FREQUENCY REPORTED AS ONE TIME ONLY
     Route: 042

REACTIONS (4)
  - DIZZINESS [None]
  - HEADACHE [None]
  - HYPERSENSITIVITY [None]
  - SYNCOPE [None]
